FAERS Safety Report 6605207-0 (Version None)
Quarter: 2010Q1

REPORT INFORMATION
  Report Type: 
  Country: None (occurrence: None)
  Receive Date: 20100226
  Receipt Date: 20100218
  Transmission Date: 20100710
  Serious: Yes (Death)
  Sender: FDA-Public Use
  Company Number: US-AMGEN-QUU393784

PATIENT
  Sex: Female

DRUGS (5)
  1. NPLATE [Suspect]
     Indication: THROMBOCYTOPENIA
     Dates: start: 20081120, end: 20090501
  2. CORTICOSTEROIDS [Concomitant]
     Dates: start: 20081024
  3. IMMU-G [Concomitant]
     Dates: start: 20080919
  4. RITUXIMAB [Concomitant]
     Dates: start: 20081024
  5. CYCLOSPORINE [Concomitant]
     Dates: start: 20081202

REACTIONS (1)
  - RENAL FAILURE [None]
